FAERS Safety Report 12074159 (Version 2)
Quarter: 2019Q2

REPORT INFORMATION
  Report Type: Spontaneous
  Country: US (occurrence: US)
  Receive Date: 20160212
  Receipt Date: 20190610
  Transmission Date: 20190711
  Serious: No
  Sender: FDA-Public Use
  Company Number: US-ASTRAZENECA-2016SE11705

PATIENT
  Sex: Female
  Weight: 70.3 kg

DRUGS (3)
  1. BYDUREON [Suspect]
     Active Substance: EXENATIDE
     Indication: TYPE 2 DIABETES MELLITUS
     Dosage: ONCE A WEEK
     Route: 058
     Dates: start: 201501, end: 201510
  2. INVOKANA [Concomitant]
     Active Substance: CANAGLIFLOZIN
     Dosage: UNKNOWN
     Route: 065
  3. BYDUREON BCISE [Suspect]
     Active Substance: EXENATIDE
     Route: 065

REACTIONS (2)
  - Weight decreased [Unknown]
  - Irritable bowel syndrome [Unknown]
